FAERS Safety Report 8847012 (Version 1)
Quarter: 2012Q4

REPORT INFORMATION
  Report Type: Report from Study
  Country: US (occurrence: US)
  Receive Date: 20121018
  Receipt Date: 20121018
  Transmission Date: 20130627
  Serious: Yes (Other)
  Sender: FDA-Public Use
  Company Number: US-ASTELLAS-2012US010246

PATIENT

DRUGS (4)
  1. ERLOTINIB [Suspect]
     Indication: NON-SMALL CELL LUNG CANCER
     Dosage: 150 mg, UID/QD
     Route: 048
  2. HYDROXYCHLOROQUINE [Suspect]
     Indication: NON-SMALL CELL LUNG CANCER
     Dosage: UNK
     Route: 048
  3. HYDROXYCHLOROQUINE [Suspect]
     Dosage: 600 mg, UID/QD
     Route: 048
  4. HYDROXYCHLOROQUINE [Suspect]
     Dosage: 1000 mg, UID/QD
     Route: 048

REACTIONS (21)
  - Anaemia [Unknown]
  - Dermatitis acneiform [None]
  - Dry skin [None]
  - Nail disorder [None]
  - Nausea [None]
  - Vomiting [None]
  - Neutropenia [None]
  - Vitreous floaters [None]
  - Pneumonitis [None]
  - Diarrhoea [None]
  - Abdominal distension [None]
  - Fatigue [None]
  - Asthenia [None]
  - Decreased appetite [None]
  - Cough [None]
  - Dysphonia [None]
  - Blood creatinine increased [None]
  - Eye irritation [None]
  - Conjunctivitis [None]
  - Ocular toxicity [None]
  - Dehydration [None]
